FAERS Safety Report 13380547 (Version 2)
Quarter: 2018Q1

REPORT INFORMATION
  Report Type: Spontaneous
  Country: IT (occurrence: IT)
  Receive Date: 20170329
  Receipt Date: 20180220
  Transmission Date: 20180508
  Serious: Yes (Other)
  Sender: FDA-Public Use
  Company Number: IT-BRISTOL-MYERS SQUIBB COMPANY-BMS-2017-023046

PATIENT
  Age: 76 Year
  Sex: Male

DRUGS (4)
  1. TOPAMAX [Interacting]
     Active Substance: TOPIRAMATE
     Indication: PRODUCT USED FOR UNKNOWN INDICATION
     Dosage: 100 MG, QD
     Route: 048
     Dates: start: 20170215, end: 20170315
  2. COUMADIN [Suspect]
     Active Substance: WARFARIN SODIUM
     Indication: HEART VALVE REPLACEMENT
     Dosage: 1 U, PRN
     Route: 048
  3. TOPAMAX [Interacting]
     Active Substance: TOPIRAMATE
     Indication: PRODUCT USED FOR UNKNOWN INDICATION
     Dosage: 50 MG, QD
     Route: 048
     Dates: start: 20170201, end: 20170214
  4. TOPAMAX [Interacting]
     Active Substance: TOPIRAMATE
     Indication: EPILEPSY
     Dosage: 25 MG, QD
     Route: 048
     Dates: start: 20170125, end: 20170131

REACTIONS (2)
  - Drug interaction [Recovering/Resolving]
  - International normalised ratio decreased [Recovering/Resolving]

NARRATIVE: CASE EVENT DATE: 20170215
